FAERS Safety Report 10614224 (Version 1)
Quarter: 2014Q4

REPORT INFORMATION
  Report Type: Spontaneous
  Country: US (occurrence: US)
  Receive Date: 20141128
  Receipt Date: 20141128
  Transmission Date: 20150529
  Serious: No
  Sender: FDA-Public Use
  Company Number: US-009507513-1411USA011540

PATIENT
  Age: 79 Year
  Sex: Female

DRUGS (3)
  1. COZAAR [Suspect]
     Active Substance: LOSARTAN POTASSIUM
     Indication: HYPERTENSION
     Dosage: UNK
     Route: 048
  2. COZAAR [Suspect]
     Active Substance: LOSARTAN POTASSIUM
     Indication: HYPERTENSION
     Dosage: UNK
     Route: 048
     Dates: start: 201408
  3. ARMOUR THYROID [Concomitant]
     Active Substance: THYROID, PORCINE\THYROID, UNSPECIFIED

REACTIONS (13)
  - Gait disturbance [Unknown]
  - Dry eye [Unknown]
  - Glycosylated haemoglobin increased [Unknown]
  - Muscle spasms [Unknown]
  - Wrong technique in drug usage process [Unknown]
  - Thyroid hormones increased [Unknown]
  - Vision blurred [Unknown]
  - Myalgia [Unknown]
  - Nasal dryness [Unknown]
  - Dry mouth [Unknown]
  - Fatigue [Unknown]
  - Drug ineffective [Unknown]
  - Hypoaesthesia [Unknown]

NARRATIVE: CASE EVENT DATE: 2014
